FAERS Safety Report 5587428-1 (Version None)
Quarter: 2008Q1

REPORT INFORMATION
  Report Type: 
  Country: None (occurrence: None)
  Receive Date: 20080110
  Receipt Date: 20080102
  Transmission Date: 20080703
  Serious: Yes (Disabling)
  Sender: FDA-Public Use
  Company Number: FR-BOEHRINGER INGELHEIM PHARMACEUTICALS, INC.-2007-FF-01122FF

PATIENT
  Sex: Male
  Weight: 107 kg

DRUGS (2)
  1. SIFROL [Suspect]
     Indication: PARKINSON'S DISEASE
     Route: 048
  2. STALEVO 100 [Concomitant]
     Indication: PARKINSON'S DISEASE
     Dosage: 400 -100 - 800 PER DAY
     Route: 048

REACTIONS (1)
  - TREMOR [None]
